FAERS Safety Report 9592906 (Version 3)
Quarter: 2013Q4

REPORT INFORMATION
  Report Type: Report from Study
  Country: HK (occurrence: HK)
  Receive Date: 20131004
  Receipt Date: 20131009
  Transmission Date: 20140711
  Serious: Yes (Hospitalization)
  Sender: FDA-Public Use
  Company Number: HK-B.I. PHARMACEUTICALS,INC./RIDGEFIELD-2013-BI-26873BI

PATIENT
  Age: 73 Year
  Sex: Female
  Weight: 40.6 kg

DRUGS (3)
  1. AFATINIB [Suspect]
     Indication: NON-SMALL CELL LUNG CANCER
     Dosage: 50 MG
     Route: 048
     Dates: start: 20130718, end: 20130805
  2. AFATINIB [Suspect]
     Dosage: 30 MG
     Route: 048
     Dates: start: 20130814
  3. ENZYPLEX [Concomitant]
     Indication: ABDOMINAL DISCOMFORT
     Dosage: 1 TAB
     Route: 048
     Dates: start: 20130729

REACTIONS (3)
  - Vomiting [Recovered/Resolved]
  - Diarrhoea [Recovered/Resolved]
  - Decreased appetite [Recovered/Resolved]
